FAERS Safety Report 16890747 (Version 3)
Quarter: 2020Q1

REPORT INFORMATION
  Report Type: Spontaneous
  Country: US (occurrence: US)
  Receive Date: 20191007
  Receipt Date: 20200103
  Transmission Date: 20200409
  Serious: No
  Sender: FDA-Public Use
  Company Number: US-PFIZER INC-2019256428

PATIENT
  Age: 79 Year
  Sex: Female
  Weight: 61.68 kg

DRUGS (12)
  1. BACLOFEN. [Concomitant]
     Active Substance: BACLOFEN
     Dosage: UNK
  2. TRAMADOL. [Concomitant]
     Active Substance: TRAMADOL
     Dosage: 50 MG, 2X/DAY [2 TABLETS; AM 1 PM]
  3. LYRICA [Suspect]
     Active Substance: PREGABALIN
     Dosage: 50 MG, 1X/DAY (AT BEDTIME)
     Route: 048
     Dates: start: 20190501
  4. SIMVASTATIN. [Concomitant]
     Active Substance: SIMVASTATIN
     Indication: PAIN IN EXTREMITY
  5. LIORESAL [Concomitant]
     Active Substance: BACLOFEN
     Dosage: UNK, 1X/DAY [AT NIGHT]
  6. IMURAN [Concomitant]
     Active Substance: AZATHIOPRINE
     Dosage: 10 MG, 2X/DAY
  7. SIMVASTATIN. [Concomitant]
     Active Substance: SIMVASTATIN
     Indication: HYPERTENSION
  8. LYRICA [Suspect]
     Active Substance: PREGABALIN
     Dosage: 50 MG, 1X/DAY [AT BEDTIME/AT NIGHT]
     Dates: start: 20130730
  9. SIMVASTATIN. [Concomitant]
     Active Substance: SIMVASTATIN
     Indication: CONSTIPATION
     Dosage: 20 MG, 1X/DAY [1 AT PM]
  10. WARFARIN [Concomitant]
     Active Substance: WARFARIN
     Dosage: 1.5 DF, UNK [WARFARIN + MWF- 1.5 TTSS; 1.5 TABLET M-W-F + 1 TABLET 5 MG TTSS]
  11. LOSARTAN AND HYDROCHLOROTHIAZIDE [Concomitant]
     Active Substance: HYDROCHLOROTHIAZIDE\LOSARTAN POTASSIUM
     Dosage: 0.5 DF, 1X/DAY [50; 12.5-0.5 EVERYDAY AM]
  12. SIMVASTATIN. [Concomitant]
     Active Substance: SIMVASTATIN
     Indication: ARTHRALGIA

REACTIONS (1)
  - Eye disorder [Not Recovered/Not Resolved]

NARRATIVE: CASE EVENT DATE: 2015
